FAERS Safety Report 21813868 (Version 1)
Quarter: 2023Q1

REPORT INFORMATION
  Report Type: Spontaneous
  Country: CN (occurrence: CN)
  Receive Date: 20230104
  Receipt Date: 20230104
  Transmission Date: 20230417
  Serious: Yes (Other)
  Sender: FDA-Public Use
  Company Number: None

PATIENT
  Age: 90 Year
  Sex: Male
  Weight: 60 kg

DRUGS (4)
  1. OLANZAPINE [Suspect]
     Active Substance: OLANZAPINE
     Indication: Dementia Alzheimer^s type
     Dosage: 10MG,QD
     Route: 048
     Dates: start: 20220101, end: 20220104
  2. CLOPIDOGREL [Concomitant]
     Active Substance: CLOPIDOGREL BISULFATE
     Indication: Coronary artery disease
     Dosage: 75MG,QD
     Route: 048
     Dates: start: 20220101, end: 20220630
  3. Donepezil Hydrochloride Oral Disintegrating Tablets [Concomitant]
     Indication: Dementia Alzheimer^s type
     Dosage: 5MG,QD
     Route: 048
     Dates: start: 20220101, end: 20220630
  4. ATORVASTATIN CALCIUM [Concomitant]
     Active Substance: ATORVASTATIN CALCIUM
     Indication: Coronary artery disease
     Dosage: 10MG,QD
     Route: 048
     Dates: start: 20220101, end: 20220630

REACTIONS (1)
  - Drug ineffective for unapproved indication [Recovered/Resolved]

NARRATIVE: CASE EVENT DATE: 20220101
